FAERS Safety Report 22264485 (Version 1)
Quarter: 2023Q2

REPORT INFORMATION
  Report Type: Spontaneous
  Country: US (occurrence: None)
  Receive Date: 20230427
  Receipt Date: 20230427
  Transmission Date: 20230722
  Serious: Yes (Disabling)
  Sender: FDA-Public Use
  Company Number: None

PATIENT
  Age: 84 Year
  Sex: Female
  Weight: 68.4 kg

DRUGS (7)
  1. ACETAMINOPHEN [Suspect]
     Active Substance: ACETAMINOPHEN
     Indication: Procedural pain
     Dosage: 2 CAPSULES EVERY 6 HOURS ORAL
     Route: 048
     Dates: start: 20230427, end: 20230427
  2. WELLBUTRIN [Concomitant]
     Active Substance: BUPROPION HYDROCHLORIDE
  3. MYRBETRIQ [Concomitant]
     Active Substance: MIRABEGRON
  4. LAMACTAL [Concomitant]
  5. ACYCLOVIR [Concomitant]
     Active Substance: ACYCLOVIR
  6. PROBIOTIC ENZYMES [Concomitant]
  7. COLACE [Concomitant]
     Active Substance: DOCUSATE SODIUM

REACTIONS (2)
  - Rash [None]
  - Abdominal discomfort [None]

NARRATIVE: CASE EVENT DATE: 20230427
